FAERS Safety Report 4862167-0 (Version None)
Quarter: 2005Q4

REPORT INFORMATION
  Report Type: 
  Country: None (occurrence: None)
  Receive Date: 20051201
  Receipt Date: 20050831
  Transmission Date: 20060501
  Serious: No
  Sender: FDA-Public Use
  Company Number: 2005PV001562

PATIENT
  Age: 64 Year
  Sex: Female
  Weight: 107.0489 kg

DRUGS (9)
  1. BYETTA [Suspect]
     Indication: DIABETES MELLITUS NON-INSULIN-DEPENDENT
     Dosage: 5 MCG; BID; SC
     Route: 058
     Dates: start: 20050729
  2. GLUCOPHAGE [Concomitant]
  3. COZAAR [Concomitant]
  4. SYNTHROID [Concomitant]
  5. LEXAPROL [Concomitant]
  6. SINGULAIR [Concomitant]
  7. PRAVACHOL [Concomitant]
  8. ZYRTEC [Concomitant]
  9. ALLERGY MEDICATION [Concomitant]

REACTIONS (1)
  - INJECTION SITE BRUISING [None]
